FAERS Safety Report 20195102 (Version 2)
Quarter: 2022Q1

REPORT INFORMATION
  Report Type: Spontaneous
  Country: FI (occurrence: FI)
  Receive Date: 20211216
  Receipt Date: 20220105
  Transmission Date: 20220423
  Serious: Yes (Death, Hospitalization, Other)
  Sender: FDA-Public Use
  Company Number: FI-AMGEN-FINSP2021196049

PATIENT

DRUGS (3)
  1. PROLIA [Suspect]
     Active Substance: DENOSUMAB
     Indication: Osteoporosis
     Dosage: 60 MILLIGRAM, Q6MO
     Route: 058
  2. CALCIUM [Concomitant]
     Active Substance: CALCIUM
     Dosage: UNK
  3. CHOLECALCIFEROL [Concomitant]
     Active Substance: CHOLECALCIFEROL
     Dosage: UNK

REACTIONS (20)
  - Death [Fatal]
  - Humerus fracture [Unknown]
  - Wrist fracture [Unknown]
  - Forearm fracture [Unknown]
  - Spinal fracture [Unknown]
  - Rib fracture [Unknown]
  - Pelvic fracture [Unknown]
  - Hip fracture [Unknown]
  - Femur fracture [Unknown]
  - Ankle fracture [Unknown]
  - Tibia fracture [Unknown]
  - Fracture [Unknown]
  - Fall [Unknown]
  - Parathyroid tumour benign [Unknown]
  - Coeliac disease [Unknown]
  - Cholangitis sclerosing [Unknown]
  - Blood alkaline phosphatase increased [Unknown]
  - Blood parathyroid hormone increased [Unknown]
  - Blood calcium increased [Unknown]
  - Anti-transglutaminase antibody increased [Unknown]
